FAERS Safety Report 5759579-X (Version None)
Quarter: 2008Q2

REPORT INFORMATION
  Report Type: 
  Country: None (occurrence: None)
  Receive Date: 20080605
  Receipt Date: 20080526
  Transmission Date: 20081010
  Serious: Yes (Life-Threatening, Hospitalization)
  Sender: FDA-Public Use
  Company Number: FR-ASTRAZENECA-2008CG00786

PATIENT
  Age: 750 Month
  Sex: Male

DRUGS (5)
  1. CASODEX [Suspect]
     Indication: NEOPLASM PROSTATE
     Route: 048
     Dates: start: 20060901
  2. NOLVADEX [Suspect]
     Indication: NEOPLASM PROSTATE
     Route: 048
     Dates: start: 20060901, end: 20070728
  3. NOLVADEX [Suspect]
     Route: 048
     Dates: start: 20070728
  4. BISOPROLOL FUMARATE [Concomitant]
     Indication: HYPERTENSION
  5. COOLMETEC [Concomitant]
     Indication: HYPERTENSION

REACTIONS (2)
  - INTENTIONAL DRUG MISUSE [None]
  - MYOCARDIAL INFARCTION [None]
